FAERS Safety Report 5147393-8 (Version None)
Quarter: 2006Q4

REPORT INFORMATION
  Report Type: 
  Country: None (occurrence: None)
  Receive Date: 20061106
  Receipt Date: 20061012
  Transmission Date: 20070319
  Serious: Yes (Hospitalization)
  Sender: FDA-Public Use
  Company Number: M-06-0853

PATIENT
  Age: 70 Year
  Sex: Male

DRUGS (6)
  1. SSKI 1 G/ML (USL) [Suspect]
     Dosage: UNK, AT NIGHT PO
     Route: 048
  2. TOSITUMOMAB INJECTION (GSK) [Suspect]
     Indication: NON-HODGKIN'S LYMPHOMA
     Dosage: 450 MG, SINGLE DOSE, IV
     Route: 042
     Dates: start: 20060915, end: 20060915
  3. TOSITUMOMAB INJECTION [Suspect]
     Indication: NON-HODGKIN'S LYMPHOMA
     Dosage: 5 MCI,SINGLE DOSE, IV
     Route: 042
     Dates: start: 20060915, end: 20060915
  4. AMIODARONE HCL [Concomitant]
  5. OMEPRAZOLE [Concomitant]
  6. MULTI-VITAMIN [Concomitant]

REACTIONS (2)
  - DYSPHAGIA [None]
  - ODYNOPHAGIA [None]
